FAERS Safety Report 7249310-3 (Version None)
Quarter: 2011Q1

REPORT INFORMATION
  Report Type: 
  Country: None (occurrence: None)
  Receive Date: 20110128
  Receipt Date: 20101129
  Transmission Date: 20110831
  Serious: Yes (Other)
  Sender: FDA-Public Use
  Company Number: US-BAYER-201019936NA

PATIENT
  Sex: Female
  Weight: 114 kg

DRUGS (5)
  1. UNKNOWN DRUG [Concomitant]
     Indication: BLOOD PRESSURE ABNORMAL
  2. NAPROXEN [Concomitant]
     Dates: start: 20050901
  3. UNKNOWN DRUG [Concomitant]
     Indication: ASTHMA
     Route: 055
  4. NSAID'S [Concomitant]
  5. YASMIN [Suspect]
     Indication: BLOOD PRESSURE ABNORMAL
     Route: 048
     Dates: start: 20060629, end: 20070212

REACTIONS (8)
  - DIARRHOEA [None]
  - BILIARY COLIC [None]
  - CHOLECYSTITIS ACUTE [None]
  - VOMITING [None]
  - CHILLS [None]
  - ABDOMINAL PAIN [None]
  - CHOLELITHIASIS [None]
  - HOT FLUSH [None]
